FAERS Safety Report 5743216-4 (Version None)
Quarter: 2008Q2

REPORT INFORMATION
  Report Type: 
  Country: None (occurrence: None)
  Receive Date: 20080519
  Receipt Date: 20080509
  Transmission Date: 20081010
  Serious: Yes (Hospitalization)
  Sender: FDA-Public Use
  Company Number: JP-BOEHRINGER INGELHEIM GMBH, GERMANY-2008-BP-05408YA

PATIENT
  Sex: Male
  Weight: 56 kg

DRUGS (10)
  1. TAMSULOSIN HCL [Suspect]
     Indication: BENIGN PROSTATIC HYPERPLASIA
     Route: 048
     Dates: start: 20071112, end: 20080404
  2. TAMSULOSIN HCL [Suspect]
     Indication: POLLAKIURIA
  3. ASPIRIN [Concomitant]
     Dates: start: 20040310
  4. RENIVACE [Concomitant]
  5. OMEPRAZOLE [Concomitant]
     Dates: start: 20040428
  6. WARFARIN SODIUM [Concomitant]
     Dates: start: 20040428
  7. ARTIST [Concomitant]
     Dates: start: 20040310
  8. MIGLITOL [Concomitant]
  9. AMLODIN [Concomitant]
     Dates: start: 20070123
  10. SUNRYTHM [Concomitant]

REACTIONS (2)
  - LOSS OF CONSCIOUSNESS [None]
  - SYNCOPE [None]
